FAERS Safety Report 9126573 (Version 1)
Quarter: 2013Q1

REPORT INFORMATION
  Report Type: Spontaneous
  Country: US (occurrence: US)
  Receive Date: 20130117
  Receipt Date: 20130117
  Transmission Date: 20140127
  Serious: Yes (Hospitalization)
  Sender: FDA-Public Use
  Company Number: US-BAYER-2013-004511

PATIENT
  Age: 32 Year
  Sex: Female
  Weight: 137.4 kg

DRUGS (11)
  1. YAZ [Suspect]
  2. YASMIN [Suspect]
  3. LASIX [Concomitant]
     Dosage: 20 MG, UNK
  4. ZOLOFT [Concomitant]
     Dosage: 1000 MG, DAILY
  5. TOPAMAX [Concomitant]
     Dosage: 100 MG, DAILY
  6. ATIVAN [Concomitant]
     Dosage: 2 MG, DAILY
  7. GEODON [Concomitant]
     Dosage: 40 MG, UNK
  8. AMOXICILLIN [Concomitant]
     Dosage: 875 MG, UNK
  9. ACETAMINOPHEN W/CODEINE [Concomitant]
  10. MOTRIN [Concomitant]
  11. TYLENOL [Concomitant]

REACTIONS (1)
  - Pulmonary embolism [Recovered/Resolved]
